FAERS Safety Report 13435090 (Version 3)
Quarter: 2017Q2

REPORT INFORMATION
  Report Type: Spontaneous
  Country: US (occurrence: US)
  Receive Date: 20170413
  Receipt Date: 20170526
  Transmission Date: 20170830
  Serious: No
  Sender: FDA-Public Use
  Company Number: US-GLAXOSMITHKLINE-US2017052854

PATIENT
  Age: 72 Year
  Sex: Female

DRUGS (1)
  1. COREG CR [Suspect]
     Active Substance: CARVEDILOL PHOSPHATE
     Indication: HYPERTENSION
     Dosage: 40 MG, UNK

REACTIONS (5)
  - Dyspnoea [Recovering/Resolving]
  - Product quality issue [Unknown]
  - Peripheral swelling [Recovering/Resolving]
  - Drug ineffective [Recovering/Resolving]
  - Oxygen consumption increased [Recovering/Resolving]

NARRATIVE: CASE EVENT DATE: 201703
